FAERS Safety Report 17579051 (Version 3)
Quarter: 2020Q2

REPORT INFORMATION
  Report Type: Report from Study
  Country: US (occurrence: US)
  Receive Date: 20200325
  Receipt Date: 20200624
  Transmission Date: 20200713
  Serious: Yes (Other)
  Sender: FDA-Public Use
  Company Number: US-ROCHE-2568155

PATIENT
  Sex: Female
  Weight: 90.8 kg

DRUGS (2)
  1. OCREVUS [Suspect]
     Active Substance: OCRELIZUMAB
     Route: 042
     Dates: start: 20180413
  2. OCREVUS [Suspect]
     Active Substance: OCRELIZUMAB
     Indication: RELAPSING MULTIPLE SCLEROSIS
     Dosage: DAY 1 AND DAY 15
     Route: 042
     Dates: start: 2017

REACTIONS (6)
  - Staphylococcal infection [Recovered/Resolved]
  - Ingrowing nail [Recovered/Resolved]
  - Urinary tract infection [Not Recovered/Not Resolved]
  - Eczema [Recovered/Resolved]
  - Impaired healing [Not Recovered/Not Resolved]
  - Fatigue [Not Recovered/Not Resolved]

NARRATIVE: CASE EVENT DATE: 2019
